FAERS Safety Report 5134687-5 (Version None)
Quarter: 2006Q4

REPORT INFORMATION
  Report Type: 
  Country: None (occurrence: None)
  Receive Date: 20061025
  Receipt Date: 20061017
  Transmission Date: 20070319
  Serious: Yes (Hospitalization)
  Sender: FDA-Public Use
  Company Number: US-AMGEN-STX197186

PATIENT
  Sex: Male

DRUGS (2)
  1. ENBREL [Suspect]
     Indication: PSORIATIC ARTHROPATHY
     Route: 058
     Dates: start: 20060510
  2. ENBREL [Suspect]
     Indication: PSORIASIS

REACTIONS (3)
  - DEHYDRATION [None]
  - PNEUMONIA [None]
  - RENAL FAILURE [None]
